FAERS Safety Report 19735289 (Version 12)
Quarter: 2022Q3

REPORT INFORMATION
  Report Type: Report from Study
  Country: US (occurrence: US)
  Receive Date: 20210824
  Receipt Date: 20220714
  Transmission Date: 20221027
  Serious: Yes (Other)
  Sender: FDA-Public Use
  Company Number: NVSC2021US187608

PATIENT
  Age: 46 Year
  Sex: Female

DRUGS (5)
  1. KESIMPTA [Suspect]
     Active Substance: OFATUMUMAB
     Indication: Relapsing-remitting multiple sclerosis
     Dosage: 20 MG, QMO, (OTHER DOSAGE: 0.4 ML)
     Route: 058
     Dates: start: 20210729
  2. KESIMPTA [Suspect]
     Active Substance: OFATUMUMAB
     Indication: Clinically isolated syndrome
     Dosage: 20 MG, QMO
     Route: 058
     Dates: start: 20210801
  3. KESIMPTA [Suspect]
     Active Substance: OFATUMUMAB
     Indication: Secondary progressive multiple sclerosis
     Dosage: UNK
     Route: 058
     Dates: start: 20210901
  4. KESIMPTA [Suspect]
     Active Substance: OFATUMUMAB
     Indication: Multiple sclerosis
     Dosage: UNK
     Route: 058
     Dates: end: 202203
  5. KESIMPTA [Suspect]
     Active Substance: OFATUMUMAB
     Dosage: UNK UNK, QMO
     Route: 058
     Dates: start: 202204

REACTIONS (7)
  - Multiple sclerosis relapse [Unknown]
  - Hypoaesthesia [Not Recovered/Not Resolved]
  - Hypersensitivity [Unknown]
  - Infection [Unknown]
  - Helicobacter infection [Recovered/Resolved]
  - Headache [Recovered/Resolved]
  - Sinusitis [Recovering/Resolving]

NARRATIVE: CASE EVENT DATE: 20210809
